FAERS Safety Report 7950355-6 (Version None)
Quarter: 2011Q4

REPORT INFORMATION
  Report Type: 
  Country: None (occurrence: None)
  Receive Date: 20111130
  Receipt Date: 20111121
  Transmission Date: 20120403
  Serious: Yes (Hospitalization, Other)
  Sender: FDA-Public Use
  Company Number: US-BAYER-2011-039293

PATIENT
  Age: 42 Year
  Sex: Female
  Weight: 111.11 kg

DRUGS (6)
  1. ACETAMINOPHEN [Concomitant]
     Indication: HEADACHE
     Route: 048
  2. YASMIN [Suspect]
     Indication: CONTRACEPTION
     Dosage: UNK
     Dates: start: 20040101, end: 20110101
  3. NAPROXEN (ALEVE) [Concomitant]
     Indication: HEADACHE
     Route: 048
  4. ZOLOFT [Concomitant]
     Indication: ANXIETY
     Dosage: UNK
     Route: 048
     Dates: start: 20060101
  5. DROSPIRENONE AND ETHINYL ESTRADIOL [Suspect]
     Indication: CONTRACEPTION
     Dosage: UNK
     Dates: start: 20040101, end: 20110101
  6. MOTRIN [Concomitant]
     Indication: HEADACHE
     Route: 048

REACTIONS (2)
  - CHOLECYSTITIS [None]
  - CHOLELITHIASIS [None]
